FAERS Safety Report 10197072 (Version 2)
Quarter: 2014Q2

REPORT INFORMATION
  Report Type: Report from Study
  Country: CL (occurrence: CL)
  Receive Date: 20140527
  Receipt Date: 20140527
  Transmission Date: 20141212
  Serious: Yes (Hospitalization, Other)
  Sender: FDA-Public Use
  Company Number: CL-ACTELION-A-CH2012-63720

PATIENT
  Age: 39 Year
  Sex: Female
  Weight: 81 kg

DRUGS (5)
  1. MACITENTAN [Suspect]
     Indication: PULMONARY ARTERIAL HYPERTENSION
     Dosage: 10 MG, QD
     Route: 048
     Dates: start: 20100122
  2. SILDENAFIL [Concomitant]
  3. FUROSEMIDE [Concomitant]
  4. SPIRONOLACTONE [Concomitant]
  5. ACENOCOUMAROL [Concomitant]

REACTIONS (14)
  - Pulmonary arterial hypertension [Recovered/Resolved with Sequelae]
  - Condition aggravated [Recovered/Resolved]
  - Syncope [Recovered/Resolved with Sequelae]
  - Dyspnoea [Recovered/Resolved with Sequelae]
  - Chest pain [Recovered/Resolved with Sequelae]
  - PO2 decreased [Recovered/Resolved with Sequelae]
  - Blood bilirubin increased [Recovered/Resolved with Sequelae]
  - Generalised oedema [Recovered/Resolved with Sequelae]
  - N-terminal prohormone brain natriuretic peptide increased [Recovered/Resolved with Sequelae]
  - Renal failure [Recovered/Resolved]
  - Blood urea increased [Recovered/Resolved]
  - Blood creatinine increased [Recovered/Resolved]
  - Haemodialysis [Recovered/Resolved]
  - Blood potassium decreased [Recovered/Resolved with Sequelae]
